FAERS Safety Report 25814855 (Version 3)
Quarter: 2025Q4

REPORT INFORMATION
  Report Type: Report from Study
  Country: US (occurrence: US)
  Receive Date: 20250918
  Receipt Date: 20251205
  Transmission Date: 20260117
  Serious: Yes (Death, Hospitalization)
  Sender: ABBVIE
  Company Number: US-ABBVIE-6464057

PATIENT
  Age: 90 Year
  Sex: Male

DRUGS (1)
  1. SYNTHROID [Suspect]
     Active Substance: LEVOTHYROXINE SODIUM
     Indication: Graves^ disease
     Dosage: EVERY MORNING
     Route: 048
     Dates: start: 1979

REACTIONS (2)
  - Dementia [Fatal]
  - Neurodegenerative disorder [Fatal]
